FAERS Safety Report 19618072 (Version 2)
Quarter: 2021Q3

REPORT INFORMATION
  Report Type: Report from Study
  Country: CN (occurrence: CN)
  Receive Date: 20210728
  Receipt Date: 20210803
  Transmission Date: 20211014
  Serious: Yes (Hospitalization, Other)
  Sender: FDA-Public Use
  Company Number: NVSC2021CN046487

PATIENT
  Age: 55 Year
  Sex: Female
  Weight: 72 kg

DRUGS (27)
  1. CAPECITABINE. [Suspect]
     Active Substance: CAPECITABINE
     Dosage: 1800 MG, BID
     Route: 048
     Dates: start: 20210223
  2. GRANULOCYTE COLONY STIMULATING FACTOR [Concomitant]
     Active Substance: GRANULOCYTE COLONY-STIMULATING FACTOR NOS
     Indication: RADIOTHERAPY TO BLOOD
     Dosage: 125 UG, QD
     Route: 041
     Dates: start: 20210413, end: 20210414
  3. GRANULOCYTE COLONY STIMULATING FACTOR [Concomitant]
     Active Substance: GRANULOCYTE COLONY-STIMULATING FACTOR NOS
     Dosage: 125 UG, QD
     Route: 041
     Dates: start: 20210618, end: 20210620
  4. TYKERB [Suspect]
     Active Substance: LAPATINIB DITOSYLATE
     Dosage: 1000 MG, QD
     Route: 048
     Dates: start: 20210509, end: 20210621
  5. CAPECITABINE. [Suspect]
     Active Substance: CAPECITABINE
     Dosage: 1800 MG, BID
     Route: 048
     Dates: start: 20210508, end: 20210521
  6. CAPECITABINE. [Suspect]
     Active Substance: CAPECITABINE
     Dosage: 900 MG, BID
     Route: 048
     Dates: start: 20210622, end: 20210705
  7. TORSEMIDE. [Concomitant]
     Active Substance: TORSEMIDE
     Indication: DIURETIC THERAPY
     Dosage: 20 MG, QD
     Route: 042
     Dates: start: 20210218, end: 20210218
  8. DEXAMETHASONE. [Concomitant]
     Active Substance: DEXAMETHASONE
     Indication: HYPERSENSITIVITY
     Dosage: 10 MG, QD
     Route: 041
     Dates: start: 20210218, end: 20210218
  9. DEXAMETHASONE. [Concomitant]
     Active Substance: DEXAMETHASONE
     Indication: RASH
  10. TYKERB [Suspect]
     Active Substance: LAPATINIB DITOSYLATE
     Dosage: 1000 MG, QD
     Route: 048
     Dates: start: 20210303, end: 20210323
  11. TYKERB [Suspect]
     Active Substance: LAPATINIB DITOSYLATE
     Dosage: 1000 MG, QD
     Route: 048
     Dates: start: 20210324, end: 20210415
  12. CAPECITABINE. [Suspect]
     Active Substance: CAPECITABINE
     Dosage: 1800 MG, BID
     Route: 048
     Dates: start: 20210324, end: 20210406
  13. CAPECITABINE. [Suspect]
     Active Substance: CAPECITABINE
     Dosage: 1800 MG, BID
     Route: 048
     Dates: start: 20210303, end: 20210316
  14. ELBASVIR. [Concomitant]
     Active Substance: ELBASVIR
     Indication: CHRONIC HEPATITIS C
     Dosage: UNK, QD 50/100 MG
     Route: 048
     Dates: start: 20201030
  15. TYKERB [Suspect]
     Active Substance: LAPATINIB DITOSYLATE
     Dosage: 1000 MG, QD
     Route: 048
     Dates: start: 20210622, end: 20210712
  16. CAPECITABINE. [Suspect]
     Active Substance: CAPECITABINE
     Indication: BREAST CANCER METASTATIC
     Dosage: 1800 MG, BID (EVENING AND MORNING)
     Route: 048
     Dates: start: 20210119, end: 20210202
  17. CAPECITABINE. [Suspect]
     Active Substance: CAPECITABINE
     Dosage: 1400 MG, BID
     Route: 048
     Dates: start: 20210529, end: 20210611
  18. DEXAMETHASONE. [Concomitant]
     Active Substance: DEXAMETHASONE
     Indication: IMMUNE TOLERANCE INDUCTION
  19. TYKERB [Suspect]
     Active Substance: LAPATINIB DITOSYLATE
     Indication: BREAST CANCER METASTATIC
     Dosage: 1250 MG, QD
     Route: 048
     Dates: start: 20210109, end: 20210208
  20. TYKERB [Suspect]
     Active Substance: LAPATINIB DITOSYLATE
     Dosage: 1250 MG, QD
     Route: 048
     Dates: start: 20210209, end: 20210214
  21. CAPECITABINE. [Suspect]
     Active Substance: CAPECITABINE
     Dosage: 1800 MG, BID
     Route: 048
     Dates: start: 20210209, end: 20210214
  22. TORSEMIDE. [Concomitant]
     Active Substance: TORSEMIDE
     Indication: RASH
  23. TYKERB [Suspect]
     Active Substance: LAPATINIB DITOSYLATE
     Dosage: 1000 MG, QD
     Route: 048
     Dates: start: 20210416, end: 20210507
  24. TYKERB [Suspect]
     Active Substance: LAPATINIB DITOSYLATE
     Dosage: 1000 MG, QD
     Route: 048
     Dates: start: 20210508, end: 20210528
  25. CAPECITABINE. [Suspect]
     Active Substance: CAPECITABINE
     Dosage: 1800 MG, BID
     Route: 048
     Dates: start: 20210416, end: 20210429
  26. GRANULOCYTE COLONY STIMULATING FACTOR [Concomitant]
     Active Substance: GRANULOCYTE COLONY-STIMULATING FACTOR NOS
     Dosage: 125 UG, BID
     Route: 041
     Dates: start: 20210526, end: 20210527
  27. TYKERB [Suspect]
     Active Substance: LAPATINIB DITOSYLATE
     Dosage: 1250 MG, QD
     Route: 048
     Dates: start: 20210223

REACTIONS (35)
  - Lymphocyte count decreased [Recovered/Resolved]
  - Blood lactate dehydrogenase increased [Recovered/Resolved]
  - Blood bilirubin increased [Recovered/Resolved]
  - Neutrophil count decreased [Recovered/Resolved]
  - Hypoalbuminaemia [Recovered/Resolved]
  - Blood bilirubin increased [Recovered/Resolved]
  - Pericardial effusion [Unknown]
  - Pelvic fluid collection [Unknown]
  - Neutrophil count decreased [Recovered/Resolved]
  - Lymphocyte count decreased [Recovered/Resolved]
  - Blood alkaline phosphatase increased [Recovered/Resolved]
  - Hypokalaemia [Recovered/Resolved]
  - Fibrin D dimer increased [Unknown]
  - Nausea [Recovered/Resolved]
  - Diarrhoea [Recovered/Resolved]
  - Aspartate aminotransferase increased [Unknown]
  - Hypokalaemia [Recovered/Resolved]
  - High density lipoprotein increased [Recovered/Resolved]
  - Fibrin D dimer increased [Recovered/Resolved]
  - Neutrophil count decreased [Recovered/Resolved]
  - Anaemia [Recovered/Resolved]
  - Platelet count decreased [Recovered/Resolved]
  - Vomiting [Recovered/Resolved]
  - Aspartate aminotransferase increased [Recovered/Resolved]
  - Neutrophil count decreased [Unknown]
  - Fibrin D dimer increased [Recovered/Resolved]
  - Blood bilirubin increased [Recovered/Resolved]
  - Rash [Recovering/Resolving]
  - White blood cell count decreased [Unknown]
  - Hypertriglyceridaemia [Recovered/Resolved]
  - White blood cell count decreased [Recovered/Resolved]
  - High density lipoprotein increased [Recovered/Resolved]
  - White blood cell count decreased [Recovered/Resolved]
  - White blood cell count decreased [Recovered/Resolved]
  - Aspartate aminotransferase increased [Recovered/Resolved]

NARRATIVE: CASE EVENT DATE: 20210121
